FAERS Safety Report 5036980-3 (Version None)
Quarter: 2006Q2

REPORT INFORMATION
  Report Type: 
  Country: None (occurrence: None)
  Receive Date: 20060601
  Receipt Date: 20060424
  Transmission Date: 20061013
  Serious: Yes (Hospitalization)
  Sender: FDA-Public Use
  Company Number: US200604001794

PATIENT
  Age: 75 Year
  Sex: Female

DRUGS (2)
  1. CYMBALTA [Suspect]
     Indication: PAIN
     Dosage: 60 MG, DAILY (1/D)
     Dates: start: 20060405, end: 20060410
  2. SPIRIVA [Concomitant]

REACTIONS (1)
  - INAPPROPRIATE ANTIDIURETIC HORMONE SECRETION [None]
